FAERS Safety Report 4821806-0 (Version None)
Quarter: 2005Q4

REPORT INFORMATION
  Report Type: 
  Country: None (occurrence: None)
  Receive Date: 20051103
  Receipt Date: 20051018
  Transmission Date: 20060501
  Serious: Yes (Hospitalization)
  Sender: FDA-Public Use
  Company Number: DE_050816592

PATIENT
  Age: 55 Year
  Sex: Male

DRUGS (2)
  1. ZYPREXA [Suspect]
     Indication: DEPRESSION
     Dosage: 2.5 MG DAY
     Dates: start: 20050101
  2. REMERGIL (MIRTAZAPINE) [Concomitant]

REACTIONS (1)
  - CHRONIC MYELOID LEUKAEMIA [None]
